FAERS Safety Report 25968608 (Version 1)
Quarter: 2025Q4

REPORT INFORMATION
  Report Type: Spontaneous
  Country: EU (occurrence: EU)
  Receive Date: 20251028
  Receipt Date: 20251028
  Transmission Date: 20260117
  Serious: Yes (Hospitalization, Other)
  Sender: CHEPLAPHARM
  Company Number: None

PATIENT
  Age: 39 Year
  Sex: Female

DRUGS (21)
  1. VALGANCICLOVIR [Suspect]
     Active Substance: VALGANCICLOVIR
     Indication: Antiviral prophylaxis
     Dosage: DAILY DOSE: 900 MILLIGRAM
     Route: 048
     Dates: start: 202308, end: 20250914
  2. IBRANCE [Suspect]
     Active Substance: PALBOCICLIB
     Indication: Breast cancer
     Dosage: DAILY DOSE: 125 MILLIGRAM
     Route: 048
     Dates: start: 20250827, end: 20250918
  3. BACTRIM [Suspect]
     Active Substance: SULFAMETHOXAZOLE\TRIMETHOPRIM
     Indication: Antifungal prophylaxis
     Route: 048
     Dates: start: 202308, end: 20250919
  4. LETROZOLE [Concomitant]
     Active Substance: LETROZOLE
     Dosage: DAILY DOSE: 2.5 MILLIGRAM
  5. TRIPTORELIN [Concomitant]
     Active Substance: TRIPTORELIN
     Dosage: ONE INTRAMUSCULAR INJECTION OF 3 MG EVERY 4 WEEKS (LAST INJECTION ON 10/09).
     Route: 030
  6. EVEROLIMUS [Concomitant]
     Active Substance: EVEROLIMUS
     Dosage: 2 MG IN THE MORNING, 1.5 MG IN THE EVENING - TARGET RESIDUAL LEVEL BETWEEN 5 AND 8 MG/L.
  7. TACROLIMUS [Concomitant]
     Active Substance: TACROLIMUS
     Dosage: 2.5 MG IN THE MORNING, 2 MG IN THE EVENING - TARGET RESIDUAL LEVEL BETWEEN 5 AND 8 MG/L.
  8. PREDNISONE [Concomitant]
     Active Substance: PREDNISONE
     Dosage: DAILY DOSE: 7.5 MILLIGRAM
  9. CARVEDILOL [Concomitant]
     Active Substance: CARVEDILOL
     Dosage: 12.5 MG IN THE MORNING, 6.25 MG IN THE EVENING?DAILY DOSE: 19 MILLIGRAM
  10. ENTRESTO [Concomitant]
     Active Substance: SACUBITRIL\VALSARTAN
     Dosage: DAILY DOSE: 2 DOSAGE FORM
  11. TAHOR [Concomitant]
     Active Substance: ATORVASTATIN CALCIUM
     Dosage: DAILY DOSE: 10 MILLIGRAM
  12. ALPRAZOLAM [Concomitant]
     Active Substance: ALPRAZOLAM
     Dosage: DAILY DOSE: 0.25 MILLIGRAM
  13. Folonic acid [Concomitant]
     Dosage: 5 MG ON TUESDAYS, THURSDAYS, AND SUNDAYS
  14. MAGNESIUM [Concomitant]
     Active Substance: MAGNESIUM
     Dosage: DAILY DOSE: 1 DOSAGE FORM
  15. CALCIUM CARBONATE\CHOLECALCIFEROL [Concomitant]
     Active Substance: CALCIUM CARBONATE\CHOLECALCIFEROL
     Dosage: TABLET TO SUCK OR CHEW?DAILY DOSE: 2 DOSAGE FORM
  16. CALCIUM PHOSPHATE, DIBASIC, ANHYDROUS\MAGNESIUM GLYCEROPHOSPHATE\PHOSP [Concomitant]
     Active Substance: CALCIUM PHOSPHATE, DIBASIC, ANHYDROUS\MAGNESIUM GLYCEROPHOSPHATE\PHOSPHORIC ACID\SODIUM PHOSPHATE, D
     Dosage: ORAL SOLUTION IN DROPS, 50 DROPS IN MORNING AND EVENING?DAILY DOSE: 100 DROP
  17. POTASSIUM CHLORIDE [Concomitant]
     Active Substance: POTASSIUM CHLORIDE
     Dosage: DAILY DOSE: 1 DOSAGE FORM
  18. ACLASTA [Concomitant]
     Active Substance: ZOLEDRONIC ACID
     Dosage: 1 INFUSION PER YEAR (DONE IN 03/2024
     Dates: end: 202403
  19. SODIUM BICARBONATE [Concomitant]
     Active Substance: SODIUM BICARBONATE
     Dosage: DAILY DOSE: 1000 MILLIGRAM
  20. MYCOPHENOLATE MOFETIL [Concomitant]
     Active Substance: MYCOPHENOLATE MOFETIL
     Dates: end: 202406
  21. EVEROLIMUS [Concomitant]
     Active Substance: EVEROLIMUS
     Dates: start: 202406

REACTIONS (10)
  - Pancytopenia [Recovered/Resolved]
  - Pyelonephritis [Unknown]
  - Escherichia infection [Unknown]
  - Neutropenia [Recovered/Resolved]
  - Chronic inflammatory response syndrome [Unknown]
  - Diffuse panbronchiolitis [Unknown]
  - Renal failure [Unknown]
  - Toxicity to various agents [Unknown]
  - Cytopenia [Unknown]
  - Off label use [Recovered/Resolved]

NARRATIVE: CASE EVENT DATE: 20230801
